FAERS Safety Report 20785031 (Version 1)
Quarter: 2022Q2

REPORT INFORMATION
  Report Type: Spontaneous
  Country: AU (occurrence: AU)
  Receive Date: 20220504
  Receipt Date: 20220504
  Transmission Date: 20220721
  Serious: Yes (Other)
  Sender: FDA-Public Use
  Company Number: AU-ALLERGAN-2214204US

PATIENT
  Sex: Female

DRUGS (35)
  1. ESCITALOPRAM OXALATE [Suspect]
     Active Substance: ESCITALOPRAM OXALATE
     Indication: Psoriatic arthropathy
     Route: 065
  2. ESCITALOPRAM OXALATE [Suspect]
     Active Substance: ESCITALOPRAM OXALATE
     Indication: Pustular psoriasis
  3. ESCITALOPRAM OXALATE [Suspect]
     Active Substance: ESCITALOPRAM OXALATE
     Indication: Hidradenitis
  4. CLINDAMYCIN [Suspect]
     Active Substance: CLINDAMYCIN
     Indication: Psoriatic arthropathy
     Dosage: UNK
     Route: 065
  5. CLINDAMYCIN [Suspect]
     Active Substance: CLINDAMYCIN
     Indication: Pustular psoriasis
  6. CLINDAMYCIN [Suspect]
     Active Substance: CLINDAMYCIN
     Indication: Hidradenitis
  7. COSENTYX [Suspect]
     Active Substance: SECUKINUMAB
     Indication: Psoriatic arthropathy
     Dosage: 300 MG, Q MONTH
     Route: 058
     Dates: start: 20210309
  8. COSENTYX [Suspect]
     Active Substance: SECUKINUMAB
     Indication: Pustular psoriasis
     Dosage: UNK
     Route: 058
  9. COSENTYX [Suspect]
     Active Substance: SECUKINUMAB
     Indication: Hidradenitis
  10. DIAZEPAM [Suspect]
     Active Substance: DIAZEPAM
     Indication: Psoriatic arthropathy
     Dosage: UNK
     Route: 065
  11. DIAZEPAM [Suspect]
     Active Substance: DIAZEPAM
     Indication: Pustular psoriasis
  12. DIAZEPAM [Suspect]
     Active Substance: DIAZEPAM
     Indication: Hidradenitis
  13. FEXOFENADINE [Suspect]
     Active Substance: FEXOFENADINE HYDROCHLORIDE
     Indication: Psoriatic arthropathy
     Dosage: UNK
     Route: 065
  14. FEXOFENADINE [Suspect]
     Active Substance: FEXOFENADINE HYDROCHLORIDE
     Indication: Pustular psoriasis
  15. FEXOFENADINE [Suspect]
     Active Substance: FEXOFENADINE HYDROCHLORIDE
     Indication: Hidradenitis
  16. METFORMIN [Suspect]
     Active Substance: METFORMIN HYDROCHLORIDE
     Indication: Psoriatic arthropathy
     Dosage: UNK
     Route: 065
  17. METFORMIN [Suspect]
     Active Substance: METFORMIN HYDROCHLORIDE
     Indication: Pustular psoriasis
  18. METFORMIN [Suspect]
     Active Substance: METFORMIN HYDROCHLORIDE
     Indication: Hidradenitis
  19. PIZOTYLINE MALEATE [Suspect]
     Active Substance: PIZOTYLINE MALEATE
     Indication: Psoriatic arthropathy
     Dosage: UNK
     Route: 065
  20. PIZOTYLINE MALEATE [Suspect]
     Active Substance: PIZOTYLINE MALEATE
     Indication: Pustular psoriasis
  21. PIZOTYLINE MALEATE [Suspect]
     Active Substance: PIZOTYLINE MALEATE
     Indication: Hidradenitis
  22. PREDNISOLONE [Suspect]
     Active Substance: PREDNISOLONE
     Indication: Psoriatic arthropathy
     Dosage: UNK
     Route: 065
  23. PREDNISOLONE [Suspect]
     Active Substance: PREDNISOLONE
     Indication: Pustular psoriasis
  24. PREDNISOLONE [Suspect]
     Active Substance: PREDNISOLONE
     Indication: Hidradenitis
  25. PREGABALIN [Suspect]
     Active Substance: PREGABALIN
     Indication: Psoriatic arthropathy
     Dosage: UNK
     Route: 065
  26. PREGABALIN [Suspect]
     Active Substance: PREGABALIN
     Indication: Pustular psoriasis
  27. PREGABALIN [Suspect]
     Active Substance: PREGABALIN
     Indication: Hidradenitis
  28. PROGESTERONE [Suspect]
     Active Substance: PROGESTERONE
     Indication: Psoriatic arthropathy
     Dosage: MINI PILL
     Route: 065
  29. PROGESTERONE [Suspect]
     Active Substance: PROGESTERONE
     Indication: Pustular psoriasis
  30. PROGESTERONE [Suspect]
     Active Substance: PROGESTERONE
     Indication: Hidradenitis
  31. RABEPRAZOLE [Suspect]
     Active Substance: RABEPRAZOLE
     Indication: Hidradenitis
     Dosage: UNK
     Route: 065
  32. RABEPRAZOLE [Suspect]
     Active Substance: RABEPRAZOLE
     Indication: Pustular psoriasis
  33. SULFASALAZINE [Suspect]
     Active Substance: SULFASALAZINE
     Indication: Psoriatic arthropathy
     Dosage: UNK
     Route: 065
  34. SULFASALAZINE [Suspect]
     Active Substance: SULFASALAZINE
     Indication: Pustular psoriasis
  35. SULFASALAZINE [Suspect]
     Active Substance: SULFASALAZINE
     Indication: Hidradenitis

REACTIONS (6)
  - Condition aggravated [Unknown]
  - Infection [Unknown]
  - Lower respiratory tract infection [Unknown]
  - Tonsillitis [Unknown]
  - COVID-19 [Unknown]
  - Product use in unapproved indication [Unknown]

NARRATIVE: CASE EVENT DATE: 20210717
